FAERS Safety Report 9476226 (Version 1)
Quarter: 2013Q3

REPORT INFORMATION
  Report Type: Spontaneous
  Country: US (occurrence: None)
  Receive Date: 20130823
  Receipt Date: 20130823
  Transmission Date: 20140515
  Serious: Yes (Hospitalization)
  Sender: FDA-Public Use
  Company Number: None

PATIENT
  Age: 61 Year
  Sex: Male
  Weight: 140.6 kg

DRUGS (1)
  1. DAPTOMYCIN [Suspect]
     Indication: INFECTION
     Route: 042
     Dates: start: 20121024, end: 20121030

REACTIONS (2)
  - Rash erythematous [None]
  - Urticaria [None]
